FAERS Safety Report 13835769 (Version 4)
Quarter: 2017Q4

REPORT INFORMATION
  Report Type: Spontaneous
  Country: NL (occurrence: NL)
  Receive Date: 20170804
  Receipt Date: 20171116
  Transmission Date: 20180320
  Serious: Yes (Disabling)
  Sender: FDA-Public Use
  Company Number: NL-GILEAD-2017-0284989

PATIENT
  Age: 38 Year
  Sex: Male
  Weight: 75 kg

DRUGS (2)
  1. GENVOYA [Suspect]
     Active Substance: COBICISTAT\ELVITEGRAVIR\EMTRICITABINE\TENOFOVIR ALAFENAMIDE FUMARATE
     Indication: PRODUCT USED FOR UNKNOWN INDICATION
     Dosage: 1 DF, QD
     Route: 065
     Dates: start: 20160629, end: 20170930
  2. BISACODYL. [Concomitant]
     Active Substance: BISACODYL

REACTIONS (4)
  - Dry mouth [Recovered/Resolved]
  - Tooth disorder [Not Recovered/Not Resolved]
  - Bone formation decreased [Not Recovered/Not Resolved]
  - Tooth extraction [Unknown]

NARRATIVE: CASE EVENT DATE: 2016
